FAERS Safety Report 11264148 (Version 1)
Quarter: 2015Q3

REPORT INFORMATION
  Report Type: Spontaneous
  Country: US (occurrence: US)
  Receive Date: 20150713
  Receipt Date: 20150713
  Transmission Date: 20151125
  Serious: No
  Sender: FDA-Public Use
  Company Number: US-JNJFOC-20150612800

PATIENT
  Sex: Female

DRUGS (2)
  1. METOPROLOL TARTRATE. [Concomitant]
     Active Substance: METOPROLOL TARTRATE
     Route: 065
  2. STELARA [Suspect]
     Active Substance: USTEKINUMAB
     Indication: PSORIASIS
     Route: 058
     Dates: start: 20120517

REACTIONS (6)
  - Upper respiratory tract infection [Unknown]
  - Headache [Unknown]
  - Neuralgia [Unknown]
  - Arthralgia [Unknown]
  - Urine output decreased [Unknown]
  - Diarrhoea [Unknown]
